FAERS Safety Report 4653095-4 (Version None)
Quarter: 2005Q2

REPORT INFORMATION
  Report Type: 
  Country: None (occurrence: None)
  Receive Date: 20050503
  Receipt Date: 20050420
  Transmission Date: 20051028
  Serious: Yes (Other)
  Sender: FDA-Public Use
  Company Number: 2005064210

PATIENT
  Age: 39 Year
  Sex: Female
  Weight: 117.9352 kg

DRUGS (13)
  1. BEXTRA [Suspect]
     Indication: OSTEOARTHRITIS
     Dosage: 40 MG (20 MG, 2 IN 1 D), ORAL
     Route: 048
     Dates: start: 20030701, end: 20050411
  2. CELEBREX [Suspect]
     Indication: OSTEOARTHRITIS
     Dosage: 200 MG (200 MG, 2 IN 1 D), ORAL
     Route: 048
     Dates: end: 20030701
  3. OXYCODONE HCL [Concomitant]
  4. OXYCODONE HCL [Concomitant]
  5. ATORVASTATIN (ATORVASTATIN) [Concomitant]
  6. FOSINOPRIL SODIUM [Concomitant]
  7. AMLODIPINE BESYLATE [Concomitant]
  8. VALPROATE SODIUM [Concomitant]
  9. GABAPENTIN [Concomitant]
  10. ROSIGLITAZONE MALEATE [Concomitant]
  11. METFORMIN HCL [Concomitant]
  12. ALL OTHER THERAPEUTIC PRODUCTS (ALL OTHER THERAPEUTIC PRODUCTS) [Concomitant]
  13. CORTISONE ACETATE [Concomitant]

REACTIONS (7)
  - COUGH [None]
  - DIABETES MELLITUS INADEQUATE CONTROL [None]
  - DRUG INEFFECTIVE [None]
  - EYE IRRITATION [None]
  - OEDEMA [None]
  - ROAD TRAFFIC ACCIDENT [None]
  - STEVENS-JOHNSON SYNDROME [None]
